FAERS Safety Report 20592180 (Version 1)
Quarter: 2022Q1

REPORT INFORMATION
  Report Type: Spontaneous
  Country: US (occurrence: None)
  Receive Date: 20220314
  Receipt Date: 20220314
  Transmission Date: 20220423
  Serious: No
  Sender: FDA-Public Use
  Company Number: US-ROCHE-2753435

PATIENT
  Age: 72 Year
  Sex: Female
  Weight: 92.162 kg

DRUGS (3)
  1. XOLAIR [Suspect]
     Active Substance: OMALIZUMAB
     Indication: Urticaria
     Dosage: INFUSION IN ALTERNATING ARMS FROM B12 SHOT
     Route: 065
     Dates: start: 2019, end: 20200213
  2. XOLAIR [Suspect]
     Active Substance: OMALIZUMAB
     Dosage: ALTERNATING ARM FROM VITAMIN B12 SHOT
     Route: 065
     Dates: start: 2020
  3. VITAMIN B12 [Concomitant]
     Active Substance: CYANOCOBALAMIN
     Indication: Pernicious anaemia
     Route: 065

REACTIONS (1)
  - Tooth abscess [Not Recovered/Not Resolved]

NARRATIVE: CASE EVENT DATE: 20201101
